FAERS Safety Report 6446717-9 (Version None)
Quarter: 2009Q4

REPORT INFORMATION
  Report Type: 
  Country: None (occurrence: None)
  Receive Date: 20091119
  Receipt Date: 20091113
  Transmission Date: 20100525
  Serious: Yes (Hospitalization)
  Sender: FDA-Public Use
  Company Number: B0604876A

PATIENT
  Age: 13 Year
  Sex: Female

DRUGS (1)
  1. RELENZA [Suspect]
     Indication: INFLUENZA
     Dosage: 10MG THREE TIMES PER DAY
     Route: 055
     Dates: start: 20091112, end: 20091112

REACTIONS (2)
  - CONVULSION [None]
  - OVERDOSE [None]
